FAERS Safety Report 7338368-9 (Version None)
Quarter: 2011Q1

REPORT INFORMATION
  Report Type: 
  Country: None (occurrence: None)
  Receive Date: 20110224
  Receipt Date: 20110209
  Transmission Date: 20110831
  Serious: Yes (Hospitalization, Other)
  Sender: FDA-Public Use
  Company Number: AUR-APL-2011-00475

PATIENT
  Age: 74 Year
  Sex: Male

DRUGS (4)
  1. TENOFOVIR DISOPROXIL FUMARATE [Suspect]
     Indication: HIV INFECTION
     Dosage: 300MG, DAILY;
  2. METFORMIN [Suspect]
     Indication: TYPE 2 DIABETES MELLITUS
     Dosage: 850MG, TID;
  3. EMTRICITABINE [Concomitant]
  4. EFAVIRENZ [Concomitant]

REACTIONS (10)
  - OXYGEN SATURATION DECREASED [None]
  - OLIGURIA [None]
  - PAIN OF SKIN [None]
  - METABOLIC ACIDOSIS [None]
  - LACTIC ACIDOSIS [None]
  - RENAL TUBULAR NECROSIS [None]
  - PULMONARY HILAR ENLARGEMENT [None]
  - HAEMODIALYSIS [None]
  - DEHYDRATION [None]
  - NEPHROPATHY TOXIC [None]
